FAERS Safety Report 6411210-6 (Version None)
Quarter: 2009Q4

REPORT INFORMATION
  Report Type: 
  Country: None (occurrence: None)
  Receive Date: 20091019
  Receipt Date: 20091001
  Transmission Date: 20100525
  Serious: Yes (Death, Hospitalization)
  Sender: FDA-Public Use
  Company Number: BVT-000343

PATIENT
  Sex: Female

DRUGS (12)
  1. KINERET [Suspect]
     Indication: RHEUMATOID ARTHRITIS
     Dates: start: 20050601, end: 20050901
  2. ADA [Concomitant]
  3. METHOTREXATE [Concomitant]
  4. TOCILIZUMAB [Concomitant]
  5. DECORTIN [Concomitant]
  6. CALCIMAGON [Concomitant]
  7. FOSAMAX [Concomitant]
  8. RITUXIMAB [Concomitant]
  9. CELEBREX [Concomitant]
  10. NEURONTIN [Concomitant]
  11. NEXIUM [Concomitant]
  12. FOLIC ACID [Concomitant]

REACTIONS (5)
  - CONDITION AGGRAVATED [None]
  - INFECTION [None]
  - PULMONARY EMBOLISM [None]
  - PULMONARY FIBROSIS [None]
  - RESPIRATORY FAILURE [None]
